FAERS Safety Report 8919058 (Version 1)
Quarter: 2012Q4

REPORT INFORMATION
  Report Type: 
  Country: US (occurrence: US)
  Receive Date: 20121121
  Receipt Date: 20121121
  Transmission Date: 20130627
  Serious: No
  Sender: FDA-Public Use
  Company Number: US-ASTRAZENECA-2012SE24125

PATIENT
  Age: 72 Year
  Sex: Male
  Weight: 84.8 kg

DRUGS (7)
  1. NEXIUM [Suspect]
     Indication: ABDOMINAL PAIN
     Route: 048
     Dates: start: 20120409
  2. OXYCONTIN [Concomitant]
     Indication: PAIN
  3. PRIMADONE [Concomitant]
  4. PRAVASTATIN [Concomitant]
     Indication: BLOOD CHOLESTEROL ABNORMAL
  5. VITAMINS [Concomitant]
  6. MEDICATION FOR BLADDER INFECTION [Concomitant]
     Indication: CYSTITIS
  7. LAXATIVES [Concomitant]
     Indication: CONSTIPATION

REACTIONS (2)
  - Cystitis [Unknown]
  - Off label use [Unknown]
